FAERS Safety Report 7011004-7 (Version None)
Quarter: 2010Q3

REPORT INFORMATION
  Report Type: 
  Country: None (occurrence: None)
  Receive Date: 20100922
  Receipt Date: 20100922
  Transmission Date: 20110219
  Serious: No
  Sender: FDA-Public Use
  Company Number: None

PATIENT
  Age: 54 Year
  Sex: Male
  Weight: 87.0906 kg

DRUGS (2)
  1. LEVAQUIN [Suspect]
     Indication: PROSTATITIS
     Dosage: 500MG 1 PER DAY PO 24 DAYS 2 DIFFERENT TIME
     Route: 048
  2. CIPRO [Suspect]
     Indication: PROSTATITIS
     Dosage: 500 MG 2 PER DAY PO 20 DAYS 5 REFILLS REPEATE
     Route: 048

REACTIONS (2)
  - EPICONDYLITIS [None]
  - TENDON RUPTURE [None]
